FAERS Safety Report 9803651 (Version 1)
Quarter: 2014Q1

REPORT INFORMATION
  Report Type: Spontaneous
  Country: US (occurrence: US)
  Receive Date: 20140108
  Receipt Date: 20140108
  Transmission Date: 20141002
  Serious: No
  Sender: FDA-Public Use
  Company Number: US-GLAXOSMITHKLINE-A1019289A

PATIENT
  Age: 64 Year
  Sex: Female

DRUGS (5)
  1. LOVAZA [Suspect]
     Indication: BLOOD TRIGLYCERIDES INCREASED
     Dosage: 2CAP TWICE PER DAY
     Route: 048
     Dates: start: 20121219, end: 20130118
  2. METFORMIN [Suspect]
     Indication: BLOOD GLUCOSE INCREASED
     Dosage: 500MG TWICE PER DAY
     Dates: start: 20121219, end: 20130118
  3. GUANFACINE [Concomitant]
  4. BENAZEPRIL [Concomitant]
  5. VITAMINS [Concomitant]

REACTIONS (4)
  - Pain in extremity [Recovering/Resolving]
  - Bone disorder [Recovering/Resolving]
  - Blood glucose increased [Unknown]
  - Mass [Recovering/Resolving]
